FAERS Safety Report 4724240-7 (Version None)
Quarter: 2005Q3

REPORT INFORMATION
  Report Type: 
  Country: None (occurrence: None)
  Receive Date: 20050726
  Receipt Date: 20050714
  Transmission Date: 20060218
  Serious: Yes (Hospitalization)
  Sender: FDA-Public Use
  Company Number: US-JNJFOC-20050607483

PATIENT
  Sex: Female
  Weight: 88.45 kg

DRUGS (2)
  1. REMICADE [Suspect]
     Dosage: THIRD INFUSION
  2. REMICADE [Suspect]
     Indication: CROHN'S DISEASE
     Dosage: SECOND INFUSION

REACTIONS (5)
  - DYSKINESIA [None]
  - PAIN IN EXTREMITY [None]
  - PARALYSIS [None]
  - PHARYNGOLARYNGEAL PAIN [None]
  - SINUSITIS [None]
